FAERS Safety Report 24076403 (Version 2)
Quarter: 2024Q3

REPORT INFORMATION
  Report Type: Spontaneous
  Country: DE (occurrence: DE)
  Receive Date: 20240711
  Receipt Date: 20240717
  Transmission Date: 20241016
  Serious: Yes (Hospitalization, Other)
  Sender: UCB
  Company Number: None

PATIENT
  Age: 18 Year
  Sex: Male

DRUGS (21)
  1. BRIVARACETAM [Suspect]
     Active Substance: BRIVARACETAM
     Indication: Partial seizures with secondary generalisation
     Dosage: 200 MILLIGRAM/DAY
     Dates: start: 202205
  2. BRIVARACETAM [Suspect]
     Active Substance: BRIVARACETAM
     Indication: Partial seizures
     Dosage: 300 MILLIGRAM/DAY
     Dates: start: 202208
  3. BRIVARACETAM [Suspect]
     Active Substance: BRIVARACETAM
     Dosage: 200 MILLIGRAM/DAY
     Dates: start: 202211
  4. BRIVARACETAM [Suspect]
     Active Substance: BRIVARACETAM
     Dosage: UNK
  5. LACOSAMIDE [Suspect]
     Active Substance: LACOSAMIDE
     Indication: Partial seizures with secondary generalisation
     Dosage: 400 MILLIGRAM/DAY
     Dates: start: 202205
  6. LACOSAMIDE [Suspect]
     Active Substance: LACOSAMIDE
     Indication: Partial seizures
     Dosage: 200 MILLIGRAM/DAY
     Dates: start: 202205
  7. LAMOTRIGINE [Suspect]
     Active Substance: LAMOTRIGINE
     Indication: Partial seizures with secondary generalisation
     Dosage: 400 MILLIGRAM/DAY
     Dates: start: 202204
  8. LAMOTRIGINE [Suspect]
     Active Substance: LAMOTRIGINE
     Indication: Partial seizures
     Dosage: 450 MILLIGRAM/DAY
     Dates: start: 20220420, end: 202204
  9. LAMOTRIGINE [Suspect]
     Active Substance: LAMOTRIGINE
     Dosage: 300 MILLIGRAM/DAY
     Dates: start: 202302
  10. LAMOTRIGINE [Suspect]
     Active Substance: LAMOTRIGINE
     Dosage: 400 MILLIGRAM/DAY
     Dates: start: 202305
  11. LAMOTRIGINE [Suspect]
     Active Substance: LAMOTRIGINE
     Dosage: 350 MILLIGRAM/DAY
     Dates: start: 202306
  12. CENOBAMATE [Suspect]
     Active Substance: CENOBAMATE
     Indication: Partial seizures with secondary generalisation
     Dosage: 12.5 MILLIGRAM/DAY
     Dates: start: 2022
  13. CENOBAMATE [Suspect]
     Active Substance: CENOBAMATE
     Indication: Partial seizures
     Dosage: 100 MILLIGRAM/DAY
     Dates: start: 2022
  14. CENOBAMATE [Suspect]
     Active Substance: CENOBAMATE
     Dosage: 200 MILLIGRAM/DAY
     Dates: start: 202208
  15. CENOBAMATE [Suspect]
     Active Substance: CENOBAMATE
     Dosage: 250 MILLIGRAM/DAY
     Dates: start: 202210
  16. CENOBAMATE [Suspect]
     Active Substance: CENOBAMATE
     Dosage: 1600 MILLIGRAM/DAY
     Dates: start: 202210, end: 202211
  17. CENOBAMATE [Suspect]
     Active Substance: CENOBAMATE
     Dosage: 300 MILLIGRAM/DAY
     Dates: start: 202211
  18. CENOBAMATE [Suspect]
     Active Substance: CENOBAMATE
     Dosage: 400 MILLIGRAM/DAY
     Dates: start: 202212
  19. CENOBAMATE [Suspect]
     Active Substance: CENOBAMATE
     Dosage: 200 MILLIGRAM/DAY
     Dates: start: 202306
  20. VALPROIC ACID [Concomitant]
     Active Substance: VALPROIC ACID
     Indication: Partial seizures with secondary generalisation
     Dosage: 600 MILLIGRAM/DAY
     Dates: start: 202306
  21. VALPROIC ACID [Concomitant]
     Active Substance: VALPROIC ACID
     Indication: Partial seizures

REACTIONS (15)
  - Suicide attempt [Recovered/Resolved]
  - Partial seizures with secondary generalisation [Unknown]
  - Focal dyscognitive seizures [Unknown]
  - Increased appetite [Unknown]
  - Diplopia [Recovered/Resolved]
  - Weight increased [Unknown]
  - Abnormal behaviour [Unknown]
  - Fatigue [Recovered/Resolved]
  - Educational problem [Recovered/Resolved]
  - Impulsive behaviour [Unknown]
  - Depressed mood [Unknown]
  - Memory impairment [Recovering/Resolving]
  - Disturbance in attention [Unknown]
  - Gait disturbance [Recovered/Resolved]
  - Apathy [Unknown]

NARRATIVE: CASE EVENT DATE: 20220101
